FAERS Safety Report 25931512 (Version 2)
Quarter: 2025Q4

REPORT INFORMATION
  Report Type: Report from Study
  Country: CA (occurrence: CA)
  Receive Date: 20251016
  Receipt Date: 20251208
  Transmission Date: 20260117
  Serious: Yes (Other)
  Sender: TAKEDA
  Company Number: CA-TAKEDA-2025TUS088891

PATIENT
  Age: 56 Year
  Sex: Male

DRUGS (12)
  1. VEDOLIZUMAB [Suspect]
     Active Substance: VEDOLIZUMAB
     Indication: Colitis ulcerative
     Dosage: 300 MILLIGRAM
  2. VEDOLIZUMAB [Suspect]
     Active Substance: VEDOLIZUMAB
     Dosage: 300 MILLIGRAM
  3. CLINDAMYCIN [Concomitant]
     Active Substance: CLINDAMYCIN
     Indication: Gingivitis
     Dosage: 300 MILLIGRAM
  4. CLINDAMYCIN [Concomitant]
     Active Substance: CLINDAMYCIN
     Dosage: 300 MILLIGRAM, QID
  5. MESALAMINE [Concomitant]
     Active Substance: MESALAMINE
     Dosage: 4.2 GRAM
  6. PREDNISONE [Concomitant]
     Active Substance: PREDNISONE
     Dosage: 40 MILLIGRAM
  7. ASPIRIN [Concomitant]
     Active Substance: ASPIRIN
     Dosage: UNK
  8. APIXABAN [Concomitant]
     Active Substance: APIXABAN
     Dosage: UNK
  9. SERTRALINE [Concomitant]
     Active Substance: SERTRALINE HYDROCHLORIDE
     Dosage: UNK
  10. TAMSULOSIN [Concomitant]
     Active Substance: TAMSULOSIN
     Dosage: UNK
  11. GABAPENTIN [Concomitant]
     Active Substance: GABAPENTIN
     Dosage: UNK
  12. FERAMAX [Concomitant]
     Active Substance: IRON\POLYSACCHARIDES
     Dosage: UNK

REACTIONS (3)
  - Superficial vein thrombosis [Recovering/Resolving]
  - Varicose vein [Recovering/Resolving]
  - Emphysema [Recovering/Resolving]
